FAERS Safety Report 20439958 (Version 1)
Quarter: 2022Q1

REPORT INFORMATION
  Report Type: Spontaneous
  Country: US (occurrence: US)
  Receive Date: 20220207
  Receipt Date: 20220207
  Transmission Date: 20220424
  Serious: No
  Sender: FDA-Public Use
  Company Number: US-BEH-2022141521

PATIENT
  Sex: Male

DRUGS (1)
  1. HIZENTRA [Suspect]
     Active Substance: HUMAN IMMUNOGLOBULIN G
     Route: 065

REACTIONS (6)
  - Muscular weakness [Unknown]
  - Fatigue [Unknown]
  - Viral infection [Unknown]
  - Recalled product administered [Unknown]
  - Recalled product administered [Unknown]
  - Recalled product administered [Unknown]
